FAERS Safety Report 4854403-1 (Version None)
Quarter: 2005Q4

REPORT INFORMATION
  Report Type: 
  Country: None (occurrence: None)
  Receive Date: 20051213
  Receipt Date: 20051130
  Transmission Date: 20060501
  Serious: Yes (Other)
  Sender: FDA-Public Use
  Company Number: PAR_0437_2005

PATIENT
  Age: 14 Year
  Sex: Female

DRUGS (1)
  1. CAPOTEN [Suspect]
     Dosage: 500 MG ONCE PO
     Route: 048

REACTIONS (3)
  - ABDOMINAL PAIN UPPER [None]
  - OVERDOSE [None]
  - SUICIDAL IDEATION [None]
